FAERS Safety Report 20902656 (Version 1)
Quarter: 2022Q2

REPORT INFORMATION
  Report Type: Spontaneous
  Country: MY (occurrence: MY)
  Receive Date: 20220601
  Receipt Date: 20220601
  Transmission Date: 20220721
  Serious: Yes (Other)
  Sender: FDA-Public Use
  Company Number: MY-NOVARTISPH-NVSC2022MY124052

PATIENT
  Age: 44 Year
  Sex: Female

DRUGS (1)
  1. CERITINIB [Suspect]
     Active Substance: CERITINIB
     Indication: Anaplastic thyroid cancer
     Dosage: UNK
     Route: 065
     Dates: start: 20181109

REACTIONS (2)
  - Metastases to lung [Unknown]
  - Product use in unapproved indication [Unknown]
